FAERS Safety Report 9663354 (Version 3)
Quarter: 2013Q4

REPORT INFORMATION
  Report Type: Spontaneous
  Country: GB (occurrence: GB)
  Receive Date: 20131101
  Receipt Date: 20131213
  Transmission Date: 20140711
  Serious: Yes (Hospitalization)
  Sender: FDA-Public Use
  Company Number: GB-BRISTOL-MYERS SQUIBB COMPANY-19690536

PATIENT
  Age: 69 Year
  Sex: Female

DRUGS (7)
  1. ORENCIA [Suspect]
     Indication: RHEUMATOID ARTHRITIS
     Route: 042
     Dates: start: 20130805, end: 20130819
  2. METHOTREXATE [Concomitant]
  3. FOLIC ACID [Concomitant]
  4. BURINEX [Concomitant]
     Dosage: 1DF= 1 TABLET
  5. CO-DYDRAMOL [Concomitant]
  6. RISEDRONATE SODIUM [Concomitant]
  7. CALCICHEW [Concomitant]
     Dosage: 1DF= 1 TABLET

REACTIONS (1)
  - Colitis [Unknown]
